FAERS Safety Report 8512969-4 (Version None)
Quarter: 2012Q3

REPORT INFORMATION
  Report Type: 
  Country: None (occurrence: None)
  Receive Date: 20120716
  Receipt Date: 20120711
  Transmission Date: 20120928
  Serious: Yes (Other)
  Sender: FDA-Public Use
  Company Number: US-ABBOTT-12P-163-0948606-00

PATIENT
  Sex: Female

DRUGS (9)
  1. HUMIRA [Suspect]
     Indication: PSORIASIS
     Dates: start: 20100601, end: 20101001
  2. HUMIRA [Suspect]
     Dates: start: 20101001
  3. BENZOYL PEROXIDE [Concomitant]
     Indication: ROSACEA
     Dosage: TOPICAL, FOR FACE, AS NEEDED
  4. RETIN-A [Concomitant]
     Dosage: TO FACE, ONCE DAILY AT NIGHT
     Route: 061
  5. ASPIRIN [Suspect]
     Dates: start: 20120401
  6. RETIN-A [Concomitant]
     Indication: ROSACEA
     Dosage: AT NIGHT, TO FACE, AS NEEDED
     Route: 061
  7. ASPIRIN [Suspect]
     Indication: PRODUCT USED FOR UNKNOWN INDICATION
     Dates: start: 20120101, end: 20120401
  8. RETIN-A [Concomitant]
     Dosage: AT NIGHT, TO FACE, DAILY
     Route: 061
  9. BENZOYL PEROXIDE [Concomitant]
     Dosage: FOR FACE, DAILY
     Route: 061

REACTIONS (10)
  - DEVICE FAILURE [None]
  - INJECTION SITE HAEMATOMA [None]
  - DRUG EFFECT DECREASED [None]
  - INJECTION SITE PAIN [None]
  - PRURITUS [None]
  - HYPERHIDROSIS [None]
  - PSORIASIS [None]
  - INCREASED TENDENCY TO BRUISE [None]
  - UNEVALUABLE EVENT [None]
  - ROSACEA [None]
